FAERS Safety Report 12495326 (Version 1)
Quarter: 2016Q2

REPORT INFORMATION
  Report Type: Spontaneous
  Country: US (occurrence: None)
  Receive Date: 20160623
  Receipt Date: 20160623
  Transmission Date: 20160815
  Serious: No
  Sender: FDA-Public Use
  Company Number: None

PATIENT
  Age: 80 Year
  Sex: Female
  Weight: 61.5 kg

DRUGS (2)
  1. FUROSEMIDE. [Suspect]
     Active Substance: FUROSEMIDE
     Indication: CARDIAC FAILURE CONGESTIVE
     Route: 048
     Dates: start: 20110829
  2. METOPROLOL. [Suspect]
     Active Substance: METOPROLOL
     Indication: HYPERTENSION
     Route: 048
     Dates: start: 20110419, end: 20160617

REACTIONS (8)
  - Azotaemia [None]
  - Asthenia [None]
  - Orthostatic intolerance [None]
  - Renal impairment [None]
  - Dizziness [None]
  - Fall [None]
  - Dehydration [None]
  - Incorrect dose administered [None]

NARRATIVE: CASE EVENT DATE: 20160615
